FAERS Safety Report 4336934-6 (Version None)
Quarter: 2004Q2

REPORT INFORMATION
  Report Type: 
  Country: None (occurrence: None)
  Receive Date: 20040408
  Receipt Date: 20040220
  Transmission Date: 20050107
  Serious: Yes (Death, Other)
  Sender: FDA-Public Use
  Company Number: GAN-0073-04-USA

PATIENT
  Age: 47 Year
  Sex: Male

DRUGS (12)
  1. GANITE [Suspect]
     Indication: NON-HODGKIN'S LYMPHOMA
     Dosage: 300 MG/M2, QD, INTRAVENOUS
     Route: 042
     Dates: start: 20040215, end: 20040218
  2. METRONIDAZOLE (METRODINAZOLE) [Concomitant]
  3. VANCOMYCIN [Concomitant]
  4. PANTOPRAZOLE (PANTOPRAZOLE) [Concomitant]
  5. DOCUSATE SODIUM (DOCUSATE SODIUM) [Concomitant]
  6. DARBEPOETIN ALFA (DARBEPOETIN ALFA) [Concomitant]
  7. SENNA (SENNA) [Concomitant]
  8. PREDNISONE [Concomitant]
  9. ANALGESIC LIQ [Concomitant]
  10. PIPERACILLIN W/TAZOBACTAM (TAZOBACTAM, PIPERACILLIN) [Concomitant]
  11. FUROSEMIDE [Concomitant]
  12. WARFARIN SODIUM [Concomitant]

REACTIONS (5)
  - BONE MARROW DISORDER [None]
  - DEEP VEIN THROMBOSIS [None]
  - MYELOID MATURATION ARREST [None]
  - SEPSIS [None]
  - WHITE BLOOD CELL COUNT INCREASED [None]
